FAERS Safety Report 5092796-3 (Version None)
Quarter: 2006Q3

REPORT INFORMATION
  Report Type: 
  Country: None (occurrence: None)
  Receive Date: 20060830
  Receipt Date: 20060703
  Transmission Date: 20061208
  Serious: Yes (Hospitalization, Other)
  Sender: FDA-Public Use
  Company Number: PHRM2006FR01958

PATIENT
  Age: 78 Year
  Sex: Female
  Weight: 87 kg

DRUGS (10)
  1. LESCOL [Suspect]
     Dosage: 1 DF, QD
     Route: 048
     Dates: end: 20060516
  2. CHLORAMINOPHENE [Suspect]
     Indication: CHRONIC LYMPHOCYTIC LEUKAEMIA
     Dosage: 2 MG, QD
     Route: 048
     Dates: start: 20060331, end: 20060516
  3. BURINEX [Suspect]
     Dosage: 2.5 MG, QD
     Route: 048
  4. TRIMETAZIDINE [Concomitant]
     Dosage: 1 DF, QD
     Route: 048
  5. LACTULOSE [Concomitant]
     Dosage: 1 DF, QD
     Route: 048
  6. TROXERUTIN [Concomitant]
     Dosage: 3500 MG, QD
     Route: 048
  7. HYPERIUM [Concomitant]
     Dosage: 1 MG, BID
     Route: 048
  8. FURADANTIN [Suspect]
     Dosage: 50 MG, QD
     Route: 048
     Dates: end: 20060516
  9. LOZOL [Suspect]
     Indication: ESSENTIAL HYPERTENSION
     Dosage: 1 DF, QD
     Route: 048
     Dates: end: 20060516
  10. OXYBUTYNIN HYDROCHLORIDE [Suspect]
     Dosage: 2.5 MG, BID
     Route: 048

REACTIONS (30)
  - ANOREXIA [None]
  - BETA 2 MICROGLOBULIN INCREASED [None]
  - BLOOD BILIRUBIN INCREASED [None]
  - BLOOD IRON INCREASED [None]
  - BLOOD LACTATE DEHYDROGENASE INCREASED [None]
  - CHROMATURIA [None]
  - CHRONIC MYELOID LEUKAEMIA [None]
  - CONDITION AGGRAVATED [None]
  - DEHYDRATION [None]
  - GASTROINTESTINAL DISORDER [None]
  - HAEMATURIA [None]
  - HAEMOLYTIC ANAEMIA [None]
  - HAPTOGLOBIN DECREASED [None]
  - HEART RATE DECREASED [None]
  - HEPATIC FIBROSIS [None]
  - HEPATITIS [None]
  - HEPATOMEGALY [None]
  - HYALURONIC ACID INCREASED [None]
  - HYPOKALAEMIA [None]
  - HYPOTHYROIDISM [None]
  - IMMUNOGLOBULINS INCREASED [None]
  - JAUNDICE [None]
  - NAUSEA [None]
  - OEDEMA PERIPHERAL [None]
  - RASH ERYTHEMATOUS [None]
  - SERUM FERRITIN INCREASED [None]
  - SPLENOMEGALY [None]
  - TRANSAMINASES INCREASED [None]
  - TRANSFERRIN SATURATION INCREASED [None]
  - VITAMIN B12 INCREASED [None]
